FAERS Safety Report 7491582-4 (Version None)
Quarter: 2011Q2

REPORT INFORMATION
  Report Type: 
  Country: None (occurrence: None)
  Receive Date: 20110519
  Receipt Date: 20110505
  Transmission Date: 20111010
  Serious: Yes (Other)
  Sender: FDA-Public Use
  Company Number: US-JNJFOC-20110503612

PATIENT
  Sex: Female

DRUGS (12)
  1. SKELAXIN [Concomitant]
  2. REMICADE [Suspect]
     Route: 042
     Dates: start: 20110101
  3. ULTRACET [Concomitant]
  4. REMICADE [Suspect]
     Indication: RHEUMATOID ARTHRITIS
     Route: 042
     Dates: start: 20110430
  5. WELLBUTRIN [Concomitant]
  6. PROAIR HFA [Concomitant]
  7. TOPAMAX [Concomitant]
  8. DARVOCET [Concomitant]
  9. ADVAIR DISKUS 100/50 [Concomitant]
  10. ARAVA [Concomitant]
  11. ZANAFLEX [Concomitant]
  12. THYROID TAB [Concomitant]

REACTIONS (2)
  - DIPLOPIA [None]
  - VITH NERVE PARALYSIS [None]
